FAERS Safety Report 13837842 (Version 1)
Quarter: 2017Q3

REPORT INFORMATION
  Report Type: Report from Study
  Country: US (occurrence: US)
  Receive Date: 20170806
  Receipt Date: 20170806
  Transmission Date: 20171127
  Serious: No
  Sender: FDA-Public Use
  Company Number: PHEH2017US024594

PATIENT

DRUGS (2)
  1. ENTRESTO [Suspect]
     Active Substance: SACUBITRIL\VALSARTAN
     Indication: PRODUCT USED FOR UNKNOWN INDICATION
     Dosage: 200 MG (97MG SACUBITRIL, 103 MG VALSARTAN), BID
     Route: 048
     Dates: start: 20161114, end: 20170616
  2. ENTRESTO [Suspect]
     Active Substance: SACUBITRIL\VALSARTAN
     Dosage: 1 DF (49 MG SACUBITRIL, 51 MG VALSARTAN), UNK
     Route: 065
     Dates: start: 20170630

REACTIONS (2)
  - Hypotension [Recovered/Resolved]
  - Asthenia [Recovered/Resolved]
